FAERS Safety Report 9422235 (Version 1)
Quarter: 2013Q3

REPORT INFORMATION
  Report Type: Spontaneous
  Country: US (occurrence: US)
  Receive Date: 20130726
  Receipt Date: 20130726
  Transmission Date: 20140515
  Serious: No
  Sender: FDA-Public Use
  Company Number: US-ROXANE LABORATORIES, INC.-2013-RO-01169RO

PATIENT
  Sex: Male
  Weight: 82 kg

DRUGS (6)
  1. LACTULOSE SOLUTION USP, 10 G/15 ML [Suspect]
     Indication: ENCEPHALOPATHY
     Dosage: 5 ML
     Route: 048
  2. LACTULOSE SOLUTION USP, 10 G/15 ML [Suspect]
     Indication: HEPATIC CIRRHOSIS
  3. XANAX [Concomitant]
     Indication: ANXIETY
     Dosage: 2 MG
  4. ALPRAZOLAM [Concomitant]
     Indication: ANXIETY
     Dosage: 2 MG
  5. INTERFERON [Concomitant]
     Indication: HEPATIC CIRRHOSIS
  6. RIBAVIRIN [Concomitant]
     Indication: HEPATIC CIRRHOSIS

REACTIONS (2)
  - Sleep terror [Recovered/Resolved]
  - Sleep talking [Recovered/Resolved]
